FAERS Safety Report 5896036-4 (Version None)
Quarter: 2008Q3

REPORT INFORMATION
  Report Type: 
  Country: None (occurrence: None)
  Receive Date: 20080924
  Receipt Date: 20080715
  Transmission Date: 20090109
  Serious: Yes (Hospitalization)
  Sender: FDA-Public Use
  Company Number: AU-BRISTOL-MYERS SQUIBB COMPANY-13891387

PATIENT
  Age: 64 Year
  Sex: Male

DRUGS (13)
  1. APIXABAN [Suspect]
     Indication: THROMBOSIS PROPHYLAXIS
     Route: 048
     Dates: start: 20070815, end: 20070827
  2. PLACEBO [Suspect]
     Indication: THROMBOSIS PROPHYLAXIS
     Dosage: PLACEBO SUBCUTANEOUS
     Dates: start: 20070815, end: 20070827
  3. ASPIRIN AND DIPYRIDAMOLE [Concomitant]
     Dates: start: 20041101, end: 20070827
  4. COVERSYL PLUS [Concomitant]
     Dates: start: 20041101
  5. OMEPRAZOLE [Concomitant]
     Dates: start: 19970201
  6. OXYCONTIN [Concomitant]
     Dates: start: 20070816
  7. VENTOLIN [Concomitant]
     Dates: start: 20010701
  8. ACETAMINOPHEN [Concomitant]
     Dates: start: 20070815
  9. IBUPROFEN TABLETS [Concomitant]
     Dates: start: 20070816
  10. SERETIDE [Concomitant]
     Dates: start: 20050801
  11. TRAMADOL HCL [Concomitant]
     Dates: start: 20070827
  12. KETOROLAC TROMETHAMINE [Concomitant]
     Dates: start: 20070827
  13. MEPERIDINE HCL [Concomitant]
     Dates: start: 20070827

REACTIONS (1)
  - ARTHRALGIA [None]
